FAERS Safety Report 11825396 (Version 1)
Quarter: 2015Q4

REPORT INFORMATION
  Report Type: Spontaneous
  Country: US (occurrence: None)
  Receive Date: 20151210
  Receipt Date: 20151210
  Transmission Date: 20160305
  Serious: No
  Sender: FDA-Public Use
  Company Number: None

PATIENT
  Age: 53 Year
  Sex: Male

DRUGS (9)
  1. CAPECITABINE 500MG TEVA [Suspect]
     Active Substance: CAPECITABINE
     Indication: BREAST CANCER
     Route: 048
     Dates: start: 20141022
  2. HYDROMORPHON [Concomitant]
     Active Substance: HYDROMORPHONE
  3. PROCHLORPER [Concomitant]
  4. QUETIAPINE [Concomitant]
     Active Substance: QUETIAPINE
  5. APRAZOLAM [Concomitant]
  6. ESCITALOPRAM [Concomitant]
     Active Substance: ESCITALOPRAM OXALATE
  7. CAPECITABINE. [Concomitant]
     Active Substance: CAPECITABINE
  8. FENTANYL. [Concomitant]
     Active Substance: FENTANYL
  9. LEVOTHYROXIN [Concomitant]
     Active Substance: LEVOTHYROXINE

REACTIONS (1)
  - Therapy cessation [None]

NARRATIVE: CASE EVENT DATE: 20151201
